FAERS Safety Report 18770763 (Version 1)
Quarter: 2021Q1

REPORT INFORMATION
  Report Type: Spontaneous
  Country: PK (occurrence: PK)
  Receive Date: 20210122
  Receipt Date: 20210122
  Transmission Date: 20210419
  Serious: Yes (Other)
  Sender: FDA-Public Use
  Company Number: PK-AMGEN-PAKSP2019208337

PATIENT
  Age: 24 Year
  Sex: Female
  Weight: 71 kg

DRUGS (11)
  1. INDERAL [Concomitant]
     Active Substance: PROPRANOLOL HYDROCHLORIDE
     Dosage: 40 MILLIGRAM  (FOR 6?8 MONTHS)
  2. MONURAL [Concomitant]
     Dosage: UNK
     Dates: start: 20190619
  3. ENBREL [Suspect]
     Active Substance: ETANERCEPT
     Indication: SPONDYLITIS
     Dosage: UNK
     Route: 065
  4. ENBREL [Suspect]
     Active Substance: ETANERCEPT
     Indication: SPONDYLITIS
  5. ENBREL [Suspect]
     Active Substance: ETANERCEPT
     Indication: ANKYLOSING SPONDYLITIS
     Dosage: 50 MG, MONTHLY (ALSO REPORTED AS EVERY 3 WEEKS)
     Route: 058
     Dates: start: 201707
  6. PAROXETINE. [Concomitant]
     Active Substance: PAROXETINE
     Dosage: UNK (FOR 6?8 MONTHS)
  7. D TRES [Concomitant]
     Dosage: UNK
     Dates: start: 20190619
  8. OSTEOCARE [CALCIUM;COLECALCIFEROL;MAGNESIUM;ZINC] [Concomitant]
     Dosage: 1 DF, 1X/DAY
     Dates: start: 20190619
  9. CELBEXX [Concomitant]
     Dosage: 200 MG, AS NEEDED (1 CAPSULE AFTER DINNER AS PER NEED)
     Dates: start: 20190619
  10. FOLIC ACID. [Concomitant]
     Active Substance: FOLIC ACID
     Dosage: 5 MG, 1X/DAY (OFF SUNDAY)
  11. MTX [METHOTREXATE SODIUM] [Concomitant]
     Active Substance: METHOTREXATE SODIUM
     Dosage: 10 MG, WEEKLY

REACTIONS (13)
  - Joint swelling [Recovered/Resolved]
  - Ocular hyperaemia [Unknown]
  - Urine leukocyte esterase positive [Unknown]
  - Drug ineffective [Unknown]
  - Pain in extremity [Recovered/Resolved]
  - Off label use [Unknown]
  - Arthritis [Unknown]
  - Uveitis [Unknown]
  - Arthralgia [Recovered/Resolved]
  - Musculoskeletal stiffness [Recovered/Resolved]
  - Eye disorder [Unknown]
  - Total lung capacity increased [Unknown]
  - Vision blurred [Unknown]

NARRATIVE: CASE EVENT DATE: 201707
